FAERS Safety Report 8018510-7 (Version None)
Quarter: 2012Q1

REPORT INFORMATION
  Report Type: 
  Country: None (occurrence: None)
  Receive Date: 20120103
  Receipt Date: 20111228
  Transmission Date: 20120608
  Serious: Yes (Other)
  Sender: FDA-Public Use
  Company Number: JP-PFIZER INC-2011281156

PATIENT
  Age: 78 Year
  Sex: Female
  Weight: 45.2 kg

DRUGS (15)
  1. OMEPRAZOLE [Concomitant]
     Indication: PROPHYLAXIS AGAINST GASTROINTESTINAL ULCER
     Dosage: UNK
     Route: 048
  2. HUMULIN R [Concomitant]
     Dosage: UNK
     Route: 042
  3. HANP [Suspect]
     Indication: CARDIAC FAILURE
     Dosage: UNK
     Route: 041
     Dates: end: 20110109
  4. CARVEDILOL [Concomitant]
     Dosage: UNK
     Route: 048
  5. FUROSEMIDE [Concomitant]
     Dosage: UNK
     Route: 048
  6. ALDACTONE [Concomitant]
     Indication: CARDIAC FAILURE
     Dosage: UNK
     Route: 042
     Dates: end: 20110110
  7. SILDENAFIL CITRATE [Suspect]
     Indication: RIGHT VENTRICULAR FAILURE
     Dosage: 20 MG, 1X/DAY
     Route: 048
     Dates: start: 20110108, end: 20110109
  8. TRICHLORMETHIAZIDE [Concomitant]
     Dosage: UNK
     Route: 048
  9. VERAPAMIL HCL [Concomitant]
     Dosage: UNK
     Route: 048
  10. CEFAMEZIN ^FUJISAWA^ [Concomitant]
     Dosage: UNK
     Route: 042
     Dates: end: 20110108
  11. WARFARIN [Concomitant]
     Dosage: UNK
     Route: 048
  12. LASIX [Concomitant]
     Indication: CARDIAC FAILURE
     Dosage: UNK
     Route: 042
     Dates: end: 20110110
  13. RASILEZ [Suspect]
     Indication: HYPERTENSION
     Dosage: 150 MG, 1X/DAY
     Route: 048
     Dates: end: 20110109
  14. MAGNESIUM OXIDE [Concomitant]
     Dosage: UNK
     Route: 048
  15. DOBUPUM [Concomitant]
     Indication: CARDIAC FAILURE
     Dosage: UNK
     Route: 041
     Dates: start: 20110109, end: 20110111

REACTIONS (1)
  - URINE OUTPUT DECREASED [None]
